APPROVED DRUG PRODUCT: ISOSORBIDE DINITRATE
Active Ingredient: ISOSORBIDE DINITRATE
Strength: 5MG
Dosage Form/Route: TABLET;SUBLINGUAL
Application: A086222 | Product #001
Applicant: SANDOZ INC
Approved: Feb 19, 1988 | RLD: No | RS: No | Type: DISCN